FAERS Safety Report 17874551 (Version 3)
Quarter: 2020Q3

REPORT INFORMATION
  Report Type: Spontaneous
  Country: US (occurrence: US)
  Receive Date: 20200609
  Receipt Date: 20200706
  Transmission Date: 20201103
  Serious: No
  Sender: FDA-Public Use
  Company Number: US-SHIRE-US202018923

PATIENT
  Age: 42 Year
  Sex: Male

DRUGS (1)
  1. VYVANSE [Suspect]
     Active Substance: LISDEXAMFETAMINE DIMESYLATE
     Indication: ATTENTION DEFICIT HYPERACTIVITY DISORDER
     Dosage: 70 MILLIGRAM, UNKNOWN
     Route: 048

REACTIONS (6)
  - Unevaluable event [Unknown]
  - Product dose omission in error [Unknown]
  - Inability to afford medication [Unknown]
  - Drug ineffective [Unknown]
  - Malaise [Unknown]
  - Product physical issue [Unknown]
